FAERS Safety Report 23584169 (Version 1)
Quarter: 2024Q1

REPORT INFORMATION
  Report Type: Report from Study
  Country: US (occurrence: US)
  Receive Date: 20240301
  Receipt Date: 20240301
  Transmission Date: 20240409
  Serious: Yes (Other)
  Sender: FDA-Public Use
  Company Number: US-ABBVIE-5657387

PATIENT
  Sex: Male

DRUGS (1)
  1. SKYRIZI [Suspect]
     Active Substance: RISANKIZUMAB-RZAA
     Indication: Psoriasis
     Route: 058
     Dates: start: 20231018, end: 20231204

REACTIONS (3)
  - Deep vein thrombosis [Unknown]
  - Peripheral venous disease [Unknown]
  - Stent placement [Unknown]

NARRATIVE: CASE EVENT DATE: 20230101
